FAERS Safety Report 9789734 (Version 2)
Quarter: 2013Q4

REPORT INFORMATION
  Report Type: Spontaneous
  Country: US (occurrence: US)
  Receive Date: 20131231
  Receipt Date: 20131231
  Transmission Date: 20140711
  Serious: No
  Sender: FDA-Public Use
  Company Number: US-PFIZER INC-2013286945

PATIENT
  Age: 52 Year
  Sex: Female

DRUGS (5)
  1. XELJANZ [Suspect]
     Indication: RHEUMATOID ARTHRITIS
     Dosage: 5 MG, 2X/DAY
     Route: 048
  2. XELJANZ [Suspect]
     Dosage: 5 MG, UNK
     Route: 048
     Dates: end: 201311
  3. PREDNISONE [Concomitant]
     Dosage: 5 MG, UNK
  4. TYLENOL [Concomitant]
     Dosage: 325 MG, UNK
  5. METHYLPREDNISOLONE [Concomitant]
     Dosage: 4 MG, UNK

REACTIONS (3)
  - Drug dose omission [Unknown]
  - Diarrhoea [Unknown]
  - Abdominal pain [Unknown]
